FAERS Safety Report 6805878-X (Version None)
Quarter: 2010Q2

REPORT INFORMATION
  Report Type: 
  Country: None (occurrence: None)
  Receive Date: 20100629
  Receipt Date: 20071019
  Transmission Date: 20101027
  Serious: Yes (Other)
  Sender: FDA-Public Use
  Company Number: US-PFIZER INC-2007088996

PATIENT
  Sex: Male
  Weight: 90 kg

DRUGS (4)
  1. VIAGRA [Suspect]
     Indication: ERECTILE DYSFUNCTION
  2. DRUG USED IN DIABETES [Interacting]
     Indication: DIABETES MELLITUS
  3. METFORMIN HCL [Concomitant]
     Indication: DIABETES MELLITUS
  4. AMARYL [Concomitant]
     Indication: DIABETES MELLITUS

REACTIONS (4)
  - DEAFNESS [None]
  - DIZZINESS [None]
  - DRUG INTERACTION [None]
  - HEARING IMPAIRED [None]
